FAERS Safety Report 5068289-6 (Version None)
Quarter: 2006Q3

REPORT INFORMATION
  Report Type: 
  Country: None (occurrence: None)
  Receive Date: 20060802
  Receipt Date: 20050720
  Transmission Date: 20061208
  Serious: No
  Sender: FDA-Public Use
  Company Number: US-BRISTOL-MYERS SQUIBB COMPANY-13044821

PATIENT
  Age: 81 Year
  Sex: Male
  Weight: 83 kg

DRUGS (2)
  1. COUMADIN [Suspect]
     Indication: ATRIAL FIBRILLATION
     Dates: start: 20050331
  2. VERAPAMIL [Concomitant]

REACTIONS (7)
  - CONTUSION [None]
  - DIARRHOEA [None]
  - HAEMORRHAGE [None]
  - HAIR COLOUR CHANGES [None]
  - INTERNATIONAL NORMALISED RATIO FLUCTUATION [None]
  - RASH PRURITIC [None]
  - SPIDER VEIN [None]
